FAERS Safety Report 16403962 (Version 1)
Quarter: 2019Q2

REPORT INFORMATION
  Report Type: Spontaneous
  Country: US (occurrence: US)
  Receive Date: 20190501
  Receipt Date: 20190501
  Transmission Date: 20190711
  Serious: Yes (Hospitalization)
  Sender: FDA-Public Use
  Company Number: None

PATIENT
  Age: 64 Year
  Sex: Female

DRUGS (9)
  1. CYMBALTA [Concomitant]
     Active Substance: DULOXETINE HYDROCHLORIDE
  2. MULTI VITAMIN [Concomitant]
     Active Substance: VITAMINS
  3. OXYMORPHONE [Concomitant]
     Active Substance: OXYMORPHONE
  4. VANCOMYCIN [Concomitant]
     Active Substance: VANCOMYCIN
  5. ESTRADIOL. [Concomitant]
     Active Substance: ESTRADIOL
  6. TASIGNA [Suspect]
     Active Substance: NILOTINIB
     Indication: CHRONIC MYELOID LEUKAEMIA
     Route: 048
     Dates: start: 20160223
  7. NUCYNTA [Concomitant]
     Active Substance: TAPENTADOL HYDROCHLORIDE
  8. POTASSIUM [Concomitant]
     Active Substance: POTASSIUM
  9. FERROUS SULF [Concomitant]
     Active Substance: FERROUS SULFATE

REACTIONS (2)
  - Cerebrovascular accident [None]
  - Hypersensitivity [None]

NARRATIVE: CASE EVENT DATE: 20190426
